FAERS Safety Report 19439506 (Version 4)
Quarter: 2021Q3

REPORT INFORMATION
  Report Type: Spontaneous
  Country: AT (occurrence: AT)
  Receive Date: 20210618
  Receipt Date: 20210930
  Transmission Date: 20211014
  Serious: Yes (Death, Hospitalization, Other)
  Sender: FDA-Public Use
  Company Number: AT-ABBVIE-21P-009-3956761-00

PATIENT
  Age: 77 Year
  Sex: Male
  Weight: 76 kg

DRUGS (7)
  1. OPIUM. [Suspect]
     Active Substance: OPIUM
     Indication: DIARRHOEA
     Dosage: UNK
     Route: 065
  2. DENOSUMAB [Suspect]
     Active Substance: DENOSUMAB
     Indication: PROSTATE CANCER STAGE III
     Route: 058
  3. CIPROFLOXACIN. [Concomitant]
     Active Substance: CIPROFLOXACIN
     Indication: DIARRHOEA
  4. METRONIDAZOLE. [Suspect]
     Active Substance: METRONIDAZOLE
     Indication: DIARRHOEA
     Dosage: UNK
     Route: 065
  5. BICALUTAMIDE. [Suspect]
     Active Substance: BICALUTAMIDE
     Indication: PROSTATE CANCER STAGE III
     Dosage: UNK
     Route: 065
  6. DENOSUMAB [Suspect]
     Active Substance: DENOSUMAB
     Indication: PROSTATE CANCER STAGE III
     Dosage: UNK, MONTHLY
     Route: 058
  7. LEUPRORELIN [Suspect]
     Active Substance: LEUPROLIDE ACETATE
     Indication: PROSTATE CANCER STAGE III
     Dosage: UNK, Q3MONTHS
     Route: 030

REACTIONS (8)
  - Gastrooesophageal reflux disease [Unknown]
  - Diarrhoea [Fatal]
  - Vipoma [Fatal]
  - Device related sepsis [Fatal]
  - Drug ineffective [Unknown]
  - Atrial fibrillation [Fatal]
  - Death [Fatal]
  - Off label use [Unknown]
